FAERS Safety Report 6102196-2 (Version None)
Quarter: 2009Q1

REPORT INFORMATION
  Report Type: 
  Country: None (occurrence: None)
  Receive Date: 20090303
  Receipt Date: 20090303
  Transmission Date: 20090719
  Serious: Yes (Other)
  Sender: FDA-Public Use
  Company Number: None

PATIENT
  Age: 32 Year
  Sex: Female
  Weight: 74.8435 kg

DRUGS (2)
  1. PAROXETINE 30MG MYLAN [Suspect]
     Indication: GENERALISED ANXIETY DISORDER
     Dosage: 30MG 1 PER DAY PO
     Route: 048
     Dates: start: 19991001, end: 20090227
  2. PAROXETINE 30MG MYLAN [Suspect]
     Indication: MAJOR DEPRESSION
     Dosage: 30MG 1 PER DAY PO
     Route: 048
     Dates: start: 19991001, end: 20090227

REACTIONS (11)
  - BEDRIDDEN [None]
  - CRYING [None]
  - DRUG WITHDRAWAL SYNDROME [None]
  - INFLUENZA LIKE ILLNESS [None]
  - NIGHT SWEATS [None]
  - NIGHTMARE [None]
  - PAIN [None]
  - PANIC ATTACK [None]
  - RESTLESS LEGS SYNDROME [None]
  - SLEEP DISORDER [None]
  - SUICIDAL IDEATION [None]
